FAERS Safety Report 20488544 (Version 1)
Quarter: 2022Q1

REPORT INFORMATION
  Report Type: Report from Study
  Country: US (occurrence: US)
  Receive Date: 20220218
  Receipt Date: 20220218
  Transmission Date: 20220423
  Serious: No
  Sender: FDA-Public Use
  Company Number: US-NOVARTISTESTPH-NVSC2022US037247

PATIENT
  Sex: Female

DRUGS (1)
  1. ENTRESTO [Suspect]
     Active Substance: SACUBITRIL\VALSARTAN
     Indication: Product used for unknown indication
     Dosage: 4 DOSAGE FORM(TAKING 4 TABLETS DAILY)
     Route: 048
     Dates: start: 20220216

REACTIONS (1)
  - Extra dose administered [Not Recovered/Not Resolved]
